FAERS Safety Report 8017589-6 (Version None)
Quarter: 2011Q4

REPORT INFORMATION
  Report Type: 
  Country: None (occurrence: None)
  Receive Date: 20111229
  Receipt Date: 20111229
  Transmission Date: 20120403
  Serious: Yes (Hospitalization)
  Sender: FDA-Public Use
  Company Number: None

PATIENT
  Age: 80 Year
  Sex: Male
  Weight: 94 kg

DRUGS (2)
  1. ENOXAPARIN [Suspect]
     Indication: DEEP VEIN THROMBOSIS
     Dosage: 90 MG BID SQ
     Route: 058
     Dates: start: 20111103, end: 20111122
  2. ENOXAPARIN [Suspect]
     Indication: PULMONARY EMBOLISM
     Dosage: 90 MG BID SQ
     Route: 058
     Dates: start: 20111103, end: 20111122

REACTIONS (1)
  - THROMBOCYTOPENIA [None]
